FAERS Safety Report 5723984-8 (Version None)
Quarter: 2008Q2

REPORT INFORMATION
  Report Type: 
  Country: None (occurrence: None)
  Receive Date: 20080430
  Receipt Date: 20080422
  Transmission Date: 20081010
  Serious: Yes (Disabling)
  Sender: FDA-Public Use
  Company Number: US-ABBOTT-08P-163-0448658-00

PATIENT
  Sex: Male
  Weight: 81.72 kg

DRUGS (4)
  1. DEPAKOTE [Suspect]
     Indication: SCHIZOPHRENIA
     Route: 048
     Dates: start: 20020101
  2. DEPAKOTE [Suspect]
     Dosage: 2 TABS QAM AND 2 TABS QPM
     Route: 048
     Dates: start: 20020101
  3. OLANZAPINE [Concomitant]
     Indication: SCHIZOPHRENIA
     Route: 048
     Dates: start: 20020101
  4. WELLBUTRIN XL [Concomitant]
     Indication: SCHIZOPHRENIA
     Route: 048
     Dates: start: 20020101

REACTIONS (5)
  - BACK PAIN [None]
  - HEMIPLEGIA [None]
  - HYPOAESTHESIA [None]
  - TREMOR [None]
  - WHITE BLOOD CELL COUNT DECREASED [None]
